FAERS Safety Report 5152555-X (Version None)
Quarter: 2006Q4

REPORT INFORMATION
  Report Type: 
  Country: None (occurrence: None)
  Receive Date: 20061109
  Receipt Date: 20061025
  Transmission Date: 20070319
  Serious: Yes (Hospitalization)
  Sender: FDA-Public Use
  Company Number: A-US2006-13249

PATIENT
  Age: 32 Year
  Sex: Male
  Weight: 51.6 kg

DRUGS (1)
  1. TRACLEER [Suspect]
     Indication: PULMONARY HYPERTENSION
     Dosage: 62.5 MG, BID, ORAL
     Route: 048
     Dates: start: 20060914, end: 20061020

REACTIONS (11)
  - ANAEMIA [None]
  - CONFUSIONAL STATE [None]
  - DEAFNESS [None]
  - DIZZINESS [None]
  - INFLAMMATION [None]
  - LOCALISED OEDEMA [None]
  - MASTOIDITIS [None]
  - OEDEMA PERIPHERAL [None]
  - OXYGEN SATURATION DECREASED [None]
  - TRANSFUSION [None]
  - TREMOR [None]
